FAERS Safety Report 4849270-6 (Version None)
Quarter: 2005Q4

REPORT INFORMATION
  Report Type: 
  Country: None (occurrence: None)
  Receive Date: 20051207
  Receipt Date: 20051128
  Transmission Date: 20060501
  Serious: Yes (Hospitalization, Other)
  Sender: FDA-Public Use
  Company Number: KII-2005-0019971

PATIENT
  Age: 47 Year
  Sex: Female

DRUGS (7)
  1. MORPHINE [Suspect]
     Dosage: ORAL
     Route: 048
  2. AMITRIPTYLINE HCL [Suspect]
     Dosage: ORAL
     Route: 048
  3. FIORINAL WITH CODEINE (PHENACETIN, BUTALBITAL) [Suspect]
  4. L-DOPA (LEVODOPA) [Suspect]
  5. THYROID TAB [Suspect]
  6. ESTROGENS () [Suspect]
  7. CLONIDINE [Suspect]

REACTIONS (4)
  - BOWEL SOUNDS ABNORMAL [None]
  - COMA [None]
  - SINUS TACHYCARDIA [None]
  - TREMOR [None]
